FAERS Safety Report 9641678 (Version 3)
Quarter: 2013Q4

REPORT INFORMATION
  Report Type: Spontaneous
  Country: US (occurrence: US)
  Receive Date: 20131023
  Receipt Date: 20131125
  Transmission Date: 20140711
  Serious: No
  Sender: FDA-Public Use
  Company Number: US-TEVA-375961USA

PATIENT
  Age: 29 Year
  Sex: Female
  Weight: 121.22 kg

DRUGS (5)
  1. PARAGARD 380A [Suspect]
     Indication: CONTRACEPTION
     Route: 015
     Dates: start: 201203
  2. IBUPROFEN [Concomitant]
     Indication: PAIN
  3. IBUPROFEN [Concomitant]
     Indication: PAIN
  4. TYLENOL [Concomitant]
     Indication: PAIN
  5. TYLENOL [Concomitant]
     Indication: PAIN

REACTIONS (8)
  - Menorrhagia [Recovered/Resolved]
  - Back pain [Not Recovered/Not Resolved]
  - Pain in extremity [Not Recovered/Not Resolved]
  - Headache [Not Recovered/Not Resolved]
  - Breast pain [Not Recovered/Not Resolved]
  - Pregnancy with contraceptive device [Not Recovered/Not Resolved]
  - Drug ineffective [Not Recovered/Not Resolved]
  - Device dislocation [Unknown]
